FAERS Safety Report 5069818-9 (Version None)
Quarter: 2006Q3

REPORT INFORMATION
  Report Type: 
  Country: None (occurrence: None)
  Receive Date: 20060803
  Receipt Date: 20060801
  Transmission Date: 20061208
  Serious: Yes (Death)
  Sender: FDA-Public Use
  Company Number: IT-SANOFI-SYNTHELABO-D01200603442

PATIENT
  Sex: Male
  Weight: 66 kg

DRUGS (4)
  1. LEUCOVORIN CALCIUM [Suspect]
     Route: 042
     Dates: start: 20060606, end: 20060606
  2. FLUOROURACIL [Suspect]
     Dosage: 400 MG/M?, IV BOLUS D1+D2 FOLLOWED BY 5-FU 2400 MG/M? OVER 46-HOUR CONTINUOUS INFUSION.
     Route: 042
     Dates: start: 20060606, end: 20060607
  3. OXALIPLATIN [Suspect]
     Route: 042
     Dates: start: 20060606, end: 20060606
  4. SR57746 OR PLACEBO [Suspect]
     Indication: NEUROLOGICAL SYMPTOM
     Route: 048
     Dates: start: 20060211

REACTIONS (5)
  - BLOOD PRESSURE SYSTOLIC INCREASED [None]
  - PNEUMONITIS [None]
  - PULMONARY FIBROSIS [None]
  - SEPTIC SHOCK [None]
  - SOMNOLENCE [None]
